FAERS Safety Report 12954232 (Version 1)
Quarter: 2016Q4

REPORT INFORMATION
  Report Type: Spontaneous
  Country: US (occurrence: US)
  Receive Date: 20161117
  Receipt Date: 20161117
  Transmission Date: 20170207
  Serious: No
  Sender: FDA-Public Use
  Company Number: None

PATIENT
  Age: 33 Year
  Sex: Female
  Weight: 85.81 kg

DRUGS (1)
  1. VOLTAREN [Suspect]
     Active Substance: DICLOFENAC SODIUM
     Dosage: VOLTAREN GEL 1% - TOPICALLY - QID PM
     Route: 061
     Dates: start: 20160801, end: 20160909

REACTIONS (3)
  - Pruritus [None]
  - Drug ineffective [None]
  - Erythema [None]

NARRATIVE: CASE EVENT DATE: 20160909
